FAERS Safety Report 16438770 (Version 2)
Quarter: 2021Q3

REPORT INFORMATION
  Report Type: Report from Study
  Country: DE (occurrence: DE)
  Receive Date: 20190617
  Receipt Date: 20210917
  Transmission Date: 20211014
  Serious: Yes (Hospitalization)
  Sender: FDA-Public Use
  Company Number: DE-ACCORD-133125

PATIENT
  Weight: 67 kg

DRUGS (3)
  1. DOCETAXEL RIBOSEPHARM [Suspect]
     Active Substance: DOCETAXEL
     Indication: BREAST CANCER
     Route: 042
     Dates: start: 20190514, end: 20190514
  2. CARBOPLATIN. [Suspect]
     Active Substance: CARBOPLATIN
     Indication: BREAST CANCER
     Route: 042
     Dates: start: 20190514, end: 20190514
  3. PELGRAZ [Suspect]
     Active Substance: PEGFILGRASTIM
     Indication: PRODUCT USED FOR UNKNOWN INDICATION

REACTIONS (3)
  - Nausea [Recovered/Resolved]
  - Constipation [Recovered/Resolved]
  - Reflux gastritis [Recovered/Resolved]

NARRATIVE: CASE EVENT DATE: 20190525
